FAERS Safety Report 20134590 (Version 1)
Quarter: 2021Q4

REPORT INFORMATION
  Report Type: Other
  Country: CA (occurrence: CA)
  Receive Date: 20211201
  Receipt Date: 20211201
  Transmission Date: 20220303
  Serious: Yes (Other)
  Sender: FDA-Public Use
  Company Number: CA-APOTEX-2021AP045832

PATIENT
  Age: 89 Year
  Sex: Female

DRUGS (1)
  1. GABAPENTIN [Suspect]
     Active Substance: GABAPENTIN
     Indication: Neuralgia
     Dosage: 100 MILLIGRAM
     Route: 065

REACTIONS (4)
  - Thrombosis [Unknown]
  - Off label use [Unknown]
  - Wrong technique in product usage process [Unknown]
  - Dizziness [Unknown]
